FAERS Safety Report 6494005-7 (Version None)
Quarter: 2009Q4

REPORT INFORMATION
  Report Type: 
  Country: None (occurrence: None)
  Receive Date: 20091214
  Receipt Date: 20081208
  Transmission Date: 20100525
  Serious: No
  Sender: FDA-Public Use
  Company Number: US-BRISTOL-MYERS SQUIBB COMPANY-14435879

PATIENT
  Age: 60 Year
  Sex: Female
  Weight: 68 kg

DRUGS (3)
  1. ABILIFY [Suspect]
     Indication: DEPRESSION
  2. LAMICTAL [Concomitant]
  3. PROZAC [Concomitant]

REACTIONS (1)
  - DISTURBANCE IN ATTENTION [None]
